FAERS Safety Report 7546837-1 (Version None)
Quarter: 2011Q2

REPORT INFORMATION
  Report Type: 
  Country: None (occurrence: None)
  Receive Date: 20110614
  Receipt Date: 20110606
  Transmission Date: 20111010
  Serious: Yes (Life-Threatening, Hospitalization)
  Sender: FDA-Public Use
  Company Number: US-ROCHE-781844

PATIENT
  Sex: Female

DRUGS (4)
  1. CARBOPLATIN [Suspect]
     Indication: OVARIAN EPITHELIAL CANCER
     Dosage: CYCLE = 3 WEEKS: PHASE A(CYCLES=1 6):CARBOPLATIN: AUC 6 IV ON DAY 1
     Route: 042
     Dates: start: 20091210
  2. BEVACIZUMAB [Suspect]
     Indication: OVARIAN EPITHELIAL CANCER
     Dosage: CYCLE = 3 WKS: PHASE A(CYCLES=1-6):BEVAC: OVER 30 TO 90 MIN ON DAY 1, BEGINNING WITH CYCLE 2.
     Route: 042
     Dates: start: 20091208
  3. BEVACIZUMAB [Suspect]
     Dosage: PHASE B: (CYCLES 7-22): BEVACIZUMAB: OVER 30-90 MIN  ON DAY 1. LAST DOSE PRIOR TO SAE: 19 OCT 2010
     Route: 042
  4. PACLITAXEL [Suspect]
     Indication: OVARIAN EPITHELIAL CANCER
     Dosage: CYCLE = 3 WEEKS: PHASE A(CYCLES=1-6): OVER 1 HR ON DAYS 1, 8 +  5.
     Route: 042
     Dates: start: 20091210

REACTIONS (14)
  - DIARRHOEA [None]
  - HYPERTENSION [None]
  - HAEMOGLOBIN DECREASED [None]
  - BLOOD CREATININE INCREASED [None]
  - GASTRIC ULCER [None]
  - LETHARGY [None]
  - PROTEINURIA [None]
  - OEDEMA PERIPHERAL [None]
  - VISION BLURRED [None]
  - NEUTROPHIL COUNT DECREASED [None]
  - NAUSEA [None]
  - DYSPNOEA [None]
  - HEADACHE [None]
  - GASTRIC HAEMORRHAGE [None]
